FAERS Safety Report 7631173-5 (Version None)
Quarter: 2011Q3

REPORT INFORMATION
  Report Type: 
  Country: None (occurrence: None)
  Receive Date: 20110725
  Receipt Date: 20110711
  Transmission Date: 20111222
  Serious: Yes (Other)
  Sender: FDA-Public Use
  Company Number: US-RANBAXY-2011RR-43983

PATIENT
  Sex: Female

DRUGS (7)
  1. CIPROFLOXACIN [Suspect]
     Dosage: 500 MG, UNK
     Route: 065
     Dates: start: 20090728
  2. CIPROFLOXACIN [Suspect]
     Dosage: 750 MG, UNK
     Route: 065
     Dates: start: 20070216
  3. CIPROFLOXACIN [Suspect]
     Dosage: 500 MG, UNK
     Route: 065
     Dates: start: 20090123
  4. CIPROFLOXACIN [Suspect]
     Dosage: 500 MG, UNK
     Route: 065
     Dates: start: 20091002
  5. CIPROFLOXACIN [Suspect]
     Dosage: 500 MG, UNK
     Route: 065
     Dates: start: 20080227
  6. LEVAQUIN [Suspect]
     Indication: SINUSITIS
     Dosage: 500 MG, UNK
     Route: 048
     Dates: start: 20081101
  7. CIPROFLOXACIN [Suspect]
     Indication: INFECTION
     Dosage: UNK
     Route: 065
     Dates: start: 20070101, end: 20090101

REACTIONS (3)
  - DEPRESSION [None]
  - ROTATOR CUFF SYNDROME [None]
  - TENDON DISORDER [None]
